FAERS Safety Report 25351991 (Version 1)
Quarter: 2025Q2

REPORT INFORMATION
  Report Type: Spontaneous
  Country: GB (occurrence: GB)
  Receive Date: 20250523
  Receipt Date: 20250523
  Transmission Date: 20250717
  Serious: Yes (Hospitalization, Other)
  Sender: USV PRIVATE LIMITED
  Company Number: GB-USV-003429

PATIENT
  Age: 2 Year
  Sex: Female

DRUGS (2)
  1. ZOLEDRONIC ACID [Suspect]
     Active Substance: ZOLEDRONIC ACID
  2. DENOSUMAB [Suspect]
     Active Substance: DENOSUMAB
     Indication: Bone giant cell tumour benign

REACTIONS (4)
  - Acute kidney injury [Unknown]
  - Hypercalcaemia [Unknown]
  - Musculoskeletal stiffness [Unknown]
  - Pain [Unknown]
